FAERS Safety Report 22143754 (Version 1)
Quarter: 2023Q1

REPORT INFORMATION
  Report Type: Report from Study
  Country: US (occurrence: US)
  Receive Date: 20230327
  Receipt Date: 20230327
  Transmission Date: 20230417
  Serious: Yes (Other)
  Sender: FDA-Public Use
  Company Number: US-BoehringerIngelheim-2022-BI-180371

PATIENT
  Age: 68 Year
  Sex: Male

DRUGS (2)
  1. OFEV [Suspect]
     Active Substance: NINTEDANIB
     Indication: Idiopathic pulmonary fibrosis
     Route: 048
     Dates: start: 20220606, end: 20221002
  2. OFEV [Suspect]
     Active Substance: NINTEDANIB
     Indication: Interstitial lung disease
     Route: 048
     Dates: start: 20221018, end: 20230320

REACTIONS (17)
  - Hepatic enzyme increased [Recovered/Resolved]
  - Liver injury [Unknown]
  - Chills [Recovered/Resolved]
  - Pyrexia [Recovered/Resolved]
  - Cough [Recovered/Resolved]
  - Fall [Recovered/Resolved]
  - Headache [Recovering/Resolving]
  - Pruritus [Recovered/Resolved]
  - Chills [Recovered/Resolved]
  - Pyrexia [Recovered/Resolved]
  - Cough [Recovered/Resolved]
  - Headache [Recovered/Resolved]
  - Muscular weakness [Recovered/Resolved]
  - Eye pain [Recovered/Resolved]
  - Liver function test increased [Recovering/Resolving]
  - COVID-19 [Recovering/Resolving]
  - Muscular weakness [Recovered/Resolved]

NARRATIVE: CASE EVENT DATE: 20220704
